FAERS Safety Report 9150055 (Version 3)
Quarter: 2013Q3

REPORT INFORMATION
  Report Type: Report from Study
  Country: US (occurrence: US)
  Receive Date: 20130308
  Receipt Date: 20130910
  Transmission Date: 20140515
  Serious: Yes (Other)
  Sender: FDA-Public Use
  Company Number: US-ABBOTT-13P-163-1053199-00

PATIENT
  Age: 65 Year
  Sex: Male
  Weight: 77.18 kg

DRUGS (2)
  1. HUMIRA PEN [Suspect]
     Indication: PSORIATIC ARTHROPATHY
     Route: 058
     Dates: start: 20080617, end: 20130218
  2. HUMIRA PEN [Suspect]
     Indication: PSORIASIS

REACTIONS (3)
  - Prostate cancer [Not Recovered/Not Resolved]
  - Prostatic specific antigen increased [Unknown]
  - Aortic valve disease [Recovered/Resolved]
